FAERS Safety Report 9190153 (Version 1)
Quarter: 2013Q1

REPORT INFORMATION
  Report Type: Spontaneous
  Country: US (occurrence: None)
  Receive Date: 20130325
  Receipt Date: 20130325
  Transmission Date: 20140127
  Serious: Yes (Life-Threatening, Disabling)
  Sender: FDA-Public Use
  Company Number: None

PATIENT
  Sex: Female
  Weight: 52.16 kg

DRUGS (1)
  1. NIASPAN [Suspect]
     Indication: BLOOD CHOLESTEROL INCREASED
     Dosage: 1,500  1 Q DA?APPROX 2 YRS STARTED OUT W/ 1,000 MG

REACTIONS (5)
  - Pain in extremity [None]
  - Syncope [None]
  - Gait disturbance [None]
  - Road traffic accident [None]
  - Pain in extremity [None]
